FAERS Safety Report 21816899 (Version 2)
Quarter: 2023Q1

REPORT INFORMATION
  Report Type: Spontaneous
  Country: US (occurrence: US)
  Receive Date: 20230104
  Receipt Date: 20230123
  Transmission Date: 20230417
  Serious: No
  Sender: FDA-Public Use
  Company Number: US-PFIZER INC-202201393376

PATIENT
  Age: 67 Year
  Sex: Male
  Weight: 68 kg

DRUGS (1)
  1. PAXLOVID [Suspect]
     Active Substance: NIRMATRELVIR\RITONAVIR
     Indication: COVID-19 treatment
     Dosage: 3 DF, DAILY (3 PILLS X 5 DAYS)
     Route: 048
     Dates: start: 20221214, end: 20221218

REACTIONS (2)
  - COVID-19 [Recovered/Resolved]
  - Disease recurrence [Recovered/Resolved]

NARRATIVE: CASE EVENT DATE: 20221221
